FAERS Safety Report 4953742-3 (Version None)
Quarter: 2006Q1

REPORT INFORMATION
  Report Type: 
  Country: None (occurrence: None)
  Receive Date: 20060323
  Receipt Date: 20060323
  Transmission Date: 20060701
  Serious: Yes (Life-Threatening)
  Sender: FDA-Public Use
  Company Number: None

PATIENT
  Age: 43 Year
  Sex: Female
  Weight: 86.1834 kg

DRUGS (1)
  1. TEMAZEPAM [Suspect]
     Indication: INSOMNIA
     Dosage: 1AT BEDTIME PO
     Route: 048
     Dates: start: 20050101, end: 20060215

REACTIONS (6)
  - ABNORMAL BEHAVIOUR [None]
  - ABNORMAL SLEEP-RELATED EVENT [None]
  - AMNESIA [None]
  - BINGE EATING [None]
  - HYPERPHAGIA [None]
  - WEIGHT INCREASED [None]
